FAERS Safety Report 9890814 (Version 1)
Quarter: 2014Q1

REPORT INFORMATION
  Report Type: Spontaneous
  Country: US (occurrence: US)
  Receive Date: 20140212
  Receipt Date: 20140212
  Transmission Date: 20141002
  Serious: No
  Sender: FDA-Public Use
  Company Number: US-009507513-1402USA003613

PATIENT
  Age: 48 Year
  Sex: Female

DRUGS (1)
  1. CORICIDIN HBP COLD AND FLU [Suspect]
     Indication: INFLUENZA
     Dosage: UNK, ONCE
     Route: 048

REACTIONS (2)
  - Feeling abnormal [Unknown]
  - Therapeutic response unexpected [Unknown]
